FAERS Safety Report 7588580-9 (Version None)
Quarter: 2011Q2

REPORT INFORMATION
  Report Type: 
  Country: None (occurrence: None)
  Receive Date: 20110627
  Receipt Date: 20110616
  Transmission Date: 20111010
  Serious: Yes (Hospitalization)
  Sender: FDA-Public Use
  Company Number: 118642

PATIENT
  Age: 68 Year
  Sex: Female

DRUGS (1)
  1. INDOMETHACIN [Suspect]
     Indication: MIGRAINE
     Dosage: 50MG IV
     Route: 042

REACTIONS (14)
  - AMNESIA [None]
  - CONFUSIONAL STATE [None]
  - MIGRAINE [None]
  - VOMITING [None]
  - APHASIA [None]
  - HYPOTONIA [None]
  - CONDITION AGGRAVATED [None]
  - HYPERVENTILATION [None]
  - VASCULAR RESISTANCE SYSTEMIC INCREASED [None]
  - CEREBRAL VASOCONSTRICTION [None]
  - PSYCHOMOTOR HYPERACTIVITY [None]
  - HEMIPARESIS [None]
  - INTRACRANIAL PRESSURE INCREASED [None]
  - ELECTROENCEPHALOGRAM ABNORMAL [None]
